FAERS Safety Report 19482147 (Version 3)
Quarter: 2021Q3

REPORT INFORMATION
  Report Type: Other
  Country: US (occurrence: US)
  Receive Date: 20210701
  Receipt Date: 20210806
  Transmission Date: 20211014
  Serious: Yes (Hospitalization, Other)
  Sender: FDA-Public Use
  Company Number: US-ROCHE-2854744

PATIENT
  Sex: Female
  Weight: 125.76 kg

DRUGS (17)
  1. FUROSEMIDE. [Concomitant]
     Active Substance: FUROSEMIDE
     Dosage: 1 TABLET
     Route: 048
  2. SINGULAIR [Concomitant]
     Active Substance: MONTELUKAST SODIUM
     Dosage: 1 TABLET
     Route: 048
  3. TROKENDI XR [Concomitant]
     Active Substance: TOPIRAMATE
     Dosage: 1 CAPSULE
     Route: 048
  4. FUROSEMIDE. [Concomitant]
     Active Substance: FUROSEMIDE
     Dosage: 1 TABLET
     Route: 048
  5. UBRELVY [Concomitant]
     Active Substance: UBROGEPANT
     Dosage: 100 MG 1 TABLET ORAL ONCE
     Route: 048
  6. OCREVUS [Suspect]
     Active Substance: OCRELIZUMAB
     Indication: PRIMARY PROGRESSIVE MULTIPLE SCLEROSIS
     Dosage: DATE OF TREATMENT: 27/JUN/2018, 12/JUL/2018, 27/DEC/2018, 27/JUN/2019, 27/DEC/2019, 22/JAN/2020, 27/
     Route: 042
     Dates: start: 2018
  7. DUONEB [Concomitant]
     Active Substance: ALBUTEROL SULFATE\IPRATROPIUM BROMIDE
     Dosage: 0.5? 2.5 MG/3 ML INHALATION SOLUTION, 3 ML, NEBULIZER, Q4H, PRN
  8. PERCOCET [Concomitant]
     Active Substance: ACETAMINOPHEN\OXYCODONE HYDROCHLORIDE
     Dosage: 7.5 MG? 325 MG ORAL TABLET 1 TABLET 3 TIMES A DAY AS NEEDED
     Route: 048
  9. CRESTOR [Concomitant]
     Active Substance: ROSUVASTATIN CALCIUM
     Dosage: 1 TABLET
     Route: 048
  10. LEVOFLOXACIN. [Concomitant]
     Active Substance: LEVOFLOXACIN
     Dosage: 1 TABLET
     Route: 048
  11. PREDNISONE. [Concomitant]
     Active Substance: PREDNISONE
     Dosage: AS DIRECTED
     Route: 048
  12. TRESIBA [Concomitant]
     Active Substance: INSULIN DEGLUDEC
     Dosage: 100 UNITS/ML SUBCUTANEOUS SOLUTION, 45 UNITS DAILY
     Route: 058
  13. KLOR?CON [Concomitant]
     Active Substance: POTASSIUM CHLORIDE
     Dosage: 1 TABLET
     Route: 048
  14. SYNTHROID [Concomitant]
     Active Substance: LEVOTHYROXINE SODIUM
     Dosage: 1 TABLET
     Route: 048
  15. CYCLOBENZAPRINE. [Concomitant]
     Active Substance: CYCLOBENZAPRINE
     Dosage: 1 TABLET
     Route: 048
  16. LYRICA [Concomitant]
     Active Substance: PREGABALIN
     Dosage: 1 CAPSULE
     Route: 048
  17. LYRICA [Concomitant]
     Active Substance: PREGABALIN
     Dosage: 2 CAPSULE
     Route: 048

REACTIONS (26)
  - Dyspepsia [Unknown]
  - Constipation [Unknown]
  - Breast discharge [Unknown]
  - Wound secretion [Unknown]
  - Pneumonia [Recovered/Resolved]
  - Thirst [Unknown]
  - Nausea [Unknown]
  - Rash [Unknown]
  - Dyspnoea [Unknown]
  - Rhinorrhoea [Unknown]
  - Haemorrhagic diathesis [Unknown]
  - Peripheral swelling [Unknown]
  - Nail disorder [Unknown]
  - Skin discolouration [Unknown]
  - Facial pain [Unknown]
  - Vomiting [Unknown]
  - Swelling face [Not Recovered/Not Resolved]
  - Multiple sclerosis relapse [Unknown]
  - Ear pain [Unknown]
  - Temperature intolerance [Unknown]
  - Pain [Unknown]
  - Benign neoplasm [Unknown]
  - Oedema peripheral [Unknown]
  - Skin ulcer [Unknown]
  - Oropharyngeal pain [Unknown]
  - Epistaxis [Unknown]

NARRATIVE: CASE EVENT DATE: 2020
